FAERS Safety Report 7989980-5 (Version None)
Quarter: 2011Q4

REPORT INFORMATION
  Report Type: 
  Country: None (occurrence: None)
  Receive Date: 20111219
  Receipt Date: 20110425
  Transmission Date: 20120403
  Serious: No
  Sender: FDA-Public Use
  Company Number: US-ASTRAZENECA-2011SE05312

PATIENT
  Age: 69 Year
  Sex: Male
  Weight: 74.8 kg

DRUGS (7)
  1. LEXAPRO [Concomitant]
  2. CRESTOR [Suspect]
     Indication: HYPERCHOLESTEROLAEMIA
     Route: 048
     Dates: start: 20100101, end: 20110401
  3. PERCOCET [Concomitant]
     Indication: GASTROINTESTINAL PAIN
  4. PREDNISONE TAB [Concomitant]
  5. ATIVAN [Concomitant]
  6. LEVOTHYROZINE [Concomitant]
     Indication: HYPOTHYROIDISM
  7. DIOVAN [Concomitant]

REACTIONS (8)
  - PAIN IN EXTREMITY [None]
  - MUSCLE ATROPHY [None]
  - ARTHRALGIA [None]
  - EJECTION FRACTION DECREASED [None]
  - MYALGIA [None]
  - CARDIAC FAILURE CONGESTIVE [None]
  - MUSCULAR WEAKNESS [None]
  - PYREXIA [None]
